FAERS Safety Report 11882470 (Version 1)
Quarter: 2015Q4

REPORT INFORMATION
  Report Type: Spontaneous
  Country: KR (occurrence: KR)
  Receive Date: 20151231
  Receipt Date: 20151231
  Transmission Date: 20160305
  Serious: Yes (Other)
  Sender: FDA-Public Use
  Company Number: KR-SA-2015SA221842

PATIENT
  Age: 72 Year
  Sex: Male

DRUGS (5)
  1. MOXIFLOXACIN. [Concomitant]
     Active Substance: MOXIFLOXACIN
     Indication: PNEUMONIA
  2. ETHAMBUTOL [Suspect]
     Active Substance: ETHAMBUTOL HYDROCHLORIDE
     Indication: TUBERCULOSIS
     Route: 065
  3. RIFAMPICIN [Suspect]
     Active Substance: RIFAMPIN
     Indication: TUBERCULOSIS
     Route: 065
  4. ISONIAZID. [Suspect]
     Active Substance: ISONIAZID
     Indication: TUBERCULOSIS
     Route: 065
  5. TAZOBACTAM/PIPERACILLIN [Concomitant]
     Indication: PNEUMONIA

REACTIONS (9)
  - Nausea [Unknown]
  - Abdominal pain [Recovered/Resolved]
  - Papule [Unknown]
  - Purpura [Unknown]
  - Macule [Unknown]
  - Hypersensitivity vasculitis [Recovering/Resolving]
  - Rash pruritic [Unknown]
  - Oesophagogastroduodenoscopy abnormal [Recovered/Resolved]
  - Hypophagia [Unknown]
